FAERS Safety Report 4508616-9 (Version None)
Quarter: 2004Q4

REPORT INFORMATION
  Report Type: 
  Country: None (occurrence: None)
  Receive Date: 20041123
  Receipt Date: 20040429
  Transmission Date: 20050328
  Serious: No
  Sender: FDA-Public Use
  Company Number: US-GLAXOSMITHKLINE-A0508982A

PATIENT
  Sex: Male

DRUGS (3)
  1. WELLBUTRIN SR [Suspect]
     Indication: CHRONIC FATIGUE SYNDROME
     Dosage: 150TAB PER DAY
     Route: 048
     Dates: start: 20020101
  2. PROZAC [Concomitant]
  3. VIT B12 [Concomitant]

REACTIONS (2)
  - HUNGER [None]
  - WEIGHT INCREASED [None]
